FAERS Safety Report 6471859-1 (Version None)
Quarter: 2009Q4

REPORT INFORMATION
  Report Type: 
  Country: None (occurrence: None)
  Receive Date: 20091203
  Receipt Date: 20091119
  Transmission Date: 20100525
  Serious: Yes (Other)
  Sender: FDA-Public Use
  Company Number: CA-GENENTECH-290010

PATIENT
  Age: 57 Year
  Sex: Female

DRUGS (2)
  1. LUCENTIS [Suspect]
     Indication: DRUG USE FOR UNKNOWN INDICATION
     Dosage: UNK
     Route: 031
     Dates: start: 20090715
  2. LUCENTIS [Suspect]
     Dosage: UNK
     Route: 031
     Dates: start: 20090819

REACTIONS (4)
  - EYE IRRITATION [None]
  - EYE PAIN [None]
  - PRURITUS [None]
  - VOMITING [None]
